FAERS Safety Report 9432917 (Version 2)
Quarter: 2013Q3

REPORT INFORMATION
  Report Type: Spontaneous
  Country: US (occurrence: US)
  Receive Date: 20130731
  Receipt Date: 20130807
  Transmission Date: 20140515
  Serious: Yes (Other)
  Sender: FDA-Public Use
  Company Number: US-ROXANE LABORATORIES, INC.-2013-RO-01238RO

PATIENT
  Sex: Female

DRUGS (6)
  1. HYDROMORPHONE [Suspect]
  2. CELEBREX [Suspect]
  3. ZITHROMAX [Suspect]
  4. VALIUM [Suspect]
  5. ROBAXIN [Suspect]
  6. UNSPECIFIED BACK PAIN MEDICATIONS [Suspect]

REACTIONS (7)
  - Breast cancer [Unknown]
  - Intraductal proliferative breast lesion [Unknown]
  - Drug ineffective [Unknown]
  - Back pain [Unknown]
  - Temporomandibular joint syndrome [Unknown]
  - Fibromyalgia [Unknown]
  - Product quality issue [Unknown]
